FAERS Safety Report 12471378 (Version 1)
Quarter: 2016Q2

REPORT INFORMATION
  Report Type: Spontaneous
  Country: US (occurrence: None)
  Receive Date: 20160615
  Receipt Date: 20160615
  Transmission Date: 20160815
  Serious: Yes (Other)
  Sender: FDA-Public Use
  Company Number: None

PATIENT
  Age: 65 Year
  Sex: Male
  Weight: 49.7 kg

DRUGS (21)
  1. LINEZOLID, 600 MG FRESENIUS KABI USA LLC [Suspect]
     Active Substance: LINEZOLID
     Indication: PATHOGEN RESISTANCE
     Dosage: 600 MG BID INTRAVENOUS (NOT OTHERWISE SPECIFIED)
     Route: 042
     Dates: start: 20160610, end: 20160613
  2. DEXMEDETOMIDINE. [Concomitant]
     Active Substance: DEXMEDETOMIDINE
  3. DIGOXIN. [Concomitant]
     Active Substance: DIGOXIN
  4. ALBUTEROL/IPRATROPIUM NEBULIZER SOLUTION [Concomitant]
  5. COLLAGENASE [Concomitant]
     Active Substance: COLLAGENASE CLOSTRIDIUM HISTOLYTICUM
  6. PANTOPRAZOLE [Concomitant]
     Active Substance: PANTOPRAZOLE SODIUM
  7. SODIUM BICARBONATE. [Concomitant]
     Active Substance: SODIUM BICARBONATE
  8. DILTIAZEM [Concomitant]
     Active Substance: DILTIAZEM
  9. FLUCONAZOLE. [Concomitant]
     Active Substance: FLUCONAZOLE
  10. INSULIN ASPART [Concomitant]
     Active Substance: INSULIN ASPART
  11. LINEZOLID, 600 MG FRESENIUS KABI USA LLC [Suspect]
     Active Substance: LINEZOLID
     Indication: URINARY TRACT INFECTION
     Dosage: 600 MG BID INTRAVENOUS (NOT OTHERWISE SPECIFIED)
     Route: 042
     Dates: start: 20160610, end: 20160613
  12. CHLORHEXIDINE GLUCONATE. [Concomitant]
     Active Substance: CHLORHEXIDINE GLUCONATE
  13. PROPOFOL. [Concomitant]
     Active Substance: PROPOFOL
  14. LINEZOLID, 600 MG FRESENIUS KABI USA LLC [Suspect]
     Active Substance: LINEZOLID
     Indication: ENTEROCOCCAL INFECTION
     Dosage: 600 MG BID INTRAVENOUS (NOT OTHERWISE SPECIFIED)
     Route: 042
     Dates: start: 20160610, end: 20160613
  15. ACETAMINOPEHN [Concomitant]
     Active Substance: ACETAMINOPHEN
  16. MEROPENEM. [Concomitant]
     Active Substance: MEROPENEM
  17. NOREPINEPHRINE [Concomitant]
     Active Substance: NOREPINEPHRINE\NOREPINEPHRINE BITARTRATE
  18. ALTEPLASE (CATHFLO) [Concomitant]
  19. MORPHINE [Concomitant]
     Active Substance: MORPHINE
  20. POTASSIUM CHLORIDE. [Concomitant]
     Active Substance: POTASSIUM CHLORIDE
  21. VANCOMYCIN [Concomitant]
     Active Substance: VANCOMYCIN

REACTIONS (1)
  - Thrombocytopenia [None]

NARRATIVE: CASE EVENT DATE: 20160611
